FAERS Safety Report 8199219-6 (Version None)
Quarter: 2012Q1

REPORT INFORMATION
  Report Type: 
  Country: None (occurrence: None)
  Receive Date: 20120309
  Receipt Date: 20120307
  Transmission Date: 20120608
  Serious: Yes (Other)
  Sender: FDA-Public Use
  Company Number: US-PFIZER INC-2012062233

PATIENT
  Sex: Female

DRUGS (3)
  1. XANAX [Suspect]
     Dosage: UNK
     Route: 048
  2. XANAX [Suspect]
     Dosage: ONE TABLET OF 5 MG DAILY
  3. XANAX [Suspect]
     Dosage: 3 TABLETS OF 5 MG DAILY

REACTIONS (3)
  - BREAST CANCER FEMALE [None]
  - ANXIETY [None]
  - ABNORMAL BEHAVIOUR [None]
